FAERS Safety Report 18865399 (Version 1)
Quarter: 2021Q1

REPORT INFORMATION
  Report Type: Spontaneous
  Country: US (occurrence: US)
  Receive Date: 20210209
  Receipt Date: 20210209
  Transmission Date: 20210420
  Serious: Yes (Death, Hospitalization)
  Sender: FDA-Public Use
  Company Number: None

PATIENT
  Age: 81 Year
  Sex: Male
  Weight: 111.1 kg

DRUGS (1)
  1. CASIRIVIMAB?IMDEVIMAB [Suspect]
     Active Substance: CASIRIVIMAB\IMDEVIMAB
     Indication: COVID-19
     Dosage: ?          OTHER FREQUENCY:ONCE;?
     Route: 042
     Dates: start: 20210131, end: 20210131

REACTIONS (5)
  - Dyspnoea [None]
  - Hypoxia [None]
  - Device electrical impedance issue [None]
  - Multiple organ dysfunction syndrome [None]
  - Infusion related reaction [None]

NARRATIVE: CASE EVENT DATE: 20210201
